FAERS Safety Report 8986373 (Version 3)
Quarter: 2013Q1

REPORT INFORMATION
  Report Type: Spontaneous
  Country: US (occurrence: US)
  Receive Date: 20121226
  Receipt Date: 20130326
  Transmission Date: 20140127
  Serious: Yes (Hospitalization, Other)
  Sender: FDA-Public Use
  Company Number: PHEH2012US025251

PATIENT
  Age: 40 Year
  Sex: Female
  Weight: 72.56 kg

DRUGS (1)
  1. GILENYA [Suspect]
     Indication: MULTIPLE SCLEROSIS
     Dosage: 0.5 MG, QD
     Route: 048
     Dates: start: 20121223, end: 20121223

REACTIONS (2)
  - Electrocardiogram QT prolonged [Unknown]
  - Bradycardia [Unknown]
